FAERS Safety Report 4323520-7 (Version None)
Quarter: 2004Q1

REPORT INFORMATION
  Report Type: 
  Country: None (occurrence: None)
  Receive Date: 20040324
  Receipt Date: 20040324
  Transmission Date: 20041129
  Serious: Yes (Hospitalization)
  Sender: FDA-Public Use
  Company Number: None

PATIENT
  Age: 45 Year
  Sex: Male
  Weight: 68.4932 kg

DRUGS (12)
  1. CISPLATIN [Suspect]
     Indication: SQUAMOUS CELL CARCINOMA
     Dosage: 186 MG
     Dates: start: 20040219
  2. CISPLATIN [Suspect]
     Indication: TONSIL CANCER
     Dosage: 186 MG
     Dates: start: 20040219
  3. CISPLATIN [Suspect]
     Indication: SQUAMOUS CELL CARCINOMA
     Dosage: 186 MG
     Dates: start: 20040311
  4. CISPLATIN [Suspect]
     Indication: TONSIL CANCER
     Dosage: 186 MG
     Dates: start: 20040311
  5. FERROUS SULFATE TAB [Concomitant]
  6. MORPHINE ELIXIR [Concomitant]
  7. PEPCID [Concomitant]
  8. MAGNESIUM OXIDE [Concomitant]
  9. ZOFRAN [Concomitant]
  10. MAGNESIUM SULFATE [Concomitant]
  11. KCL TAB [Concomitant]
  12. PHENERGAN [Concomitant]

REACTIONS (3)
  - HYPOCALCAEMIA [None]
  - HYPOKALAEMIA [None]
  - HYPOMAGNESAEMIA [None]
